FAERS Safety Report 9379785 (Version 1)
Quarter: 2013Q3

REPORT INFORMATION
  Report Type: Spontaneous
  Country: DE (occurrence: DE)
  Receive Date: 20130702
  Receipt Date: 20130702
  Transmission Date: 20140515
  Serious: Yes (Other)
  Sender: FDA-Public Use
  Company Number: DE-BAYER-2013-077883

PATIENT
  Age: 69 Year
  Sex: Female
  Weight: 81 kg

DRUGS (5)
  1. ASS [Suspect]
     Dosage: 50 MG, BID
  2. PRADAXA [Suspect]
     Dosage: UNK
  3. METOPROLOL [Concomitant]
     Dosage: 0.5, BID
  4. SIMVASTATIN [Concomitant]
     Dosage: 10 MG, QD
  5. RAMIPRIL [Concomitant]
     Dosage: 0.5 MG, QD

REACTIONS (3)
  - Dermatitis bullous [Recovering/Resolving]
  - Arthralgia [Recovering/Resolving]
  - Local swelling [Recovering/Resolving]
